FAERS Safety Report 8851241 (Version 2)
Quarter: 2013Q3

REPORT INFORMATION
  Report Type: Spontaneous
  Country: DE (occurrence: DE)
  Receive Date: 20121019
  Receipt Date: 20130725
  Transmission Date: 20140515
  Serious: Yes (Hospitalization)
  Sender: FDA-Public Use
  Company Number: DE-TEVA-364238GER

PATIENT
  Age: 21 Year
  Sex: Male

DRUGS (3)
  1. ZOPICLONE [Suspect]
     Route: 065
  2. QUETIAPINE [Concomitant]
     Indication: DRUG DEPENDENCE
     Route: 065
  3. OXAZEPAM [Concomitant]
     Dosage: 10MG
     Route: 065

REACTIONS (4)
  - Coma [Recovered/Resolved]
  - Aggression [Recovered/Resolved]
  - Disorientation [Recovered/Resolved]
  - Delusion [Recovered/Resolved]
